FAERS Safety Report 6796138-4 (Version None)
Quarter: 2010Q2

REPORT INFORMATION
  Report Type: 
  Country: None (occurrence: None)
  Receive Date: 20100625
  Receipt Date: 20100617
  Transmission Date: 20101027
  Serious: Yes (Other)
  Sender: FDA-Public Use
  Company Number: US-CELGENEUS-163-20785-10050622

PATIENT
  Sex: Male

DRUGS (5)
  1. THALOMID [Suspect]
     Route: 048
     Dates: start: 20100401
  2. AMBIEN [Concomitant]
     Indication: DRUG USE FOR UNKNOWN INDICATION
     Route: 065
  3. OXYCONTIN [Concomitant]
     Indication: DRUG USE FOR UNKNOWN INDICATION
     Route: 065
  4. MIRALAX [Concomitant]
     Indication: DRUG USE FOR UNKNOWN INDICATION
     Route: 065
  5. PLATELETS [Concomitant]
     Indication: PLATELET COUNT
     Route: 051

REACTIONS (9)
  - ABDOMINAL DISCOMFORT [None]
  - ASTHENIA [None]
  - CONSTIPATION [None]
  - EPISTAXIS [None]
  - LETHARGY [None]
  - MOVEMENT DISORDER [None]
  - PHARYNGEAL HAEMORRHAGE [None]
  - PLATELET COUNT DECREASED [None]
  - PROSTATOMEGALY [None]
